FAERS Safety Report 5846863-4 (Version None)
Quarter: 2008Q3

REPORT INFORMATION
  Report Type: 
  Country: None (occurrence: None)
  Receive Date: 20080815
  Receipt Date: 20080813
  Transmission Date: 20090109
  Serious: Yes (Other)
  Sender: FDA-Public Use
  Company Number: PHEH2008US07161

PATIENT
  Sex: Female

DRUGS (1)
  1. TEGRETOL-XR [Suspect]
     Dosage: UNK
     Dates: start: 20070301, end: 20070501

REACTIONS (7)
  - COLITIS [None]
  - GASTRITIS [None]
  - HYPERSENSITIVITY [None]
  - LACRIMATION INCREASED [None]
  - OESOPHAGITIS [None]
  - RASH [None]
  - RHINORRHOEA [None]
